FAERS Safety Report 4537500-X (Version None)
Quarter: 2005Q1

REPORT INFORMATION
  Report Type: 
  Country: None (occurrence: None)
  Receive Date: 20041216
  Receipt Date: 20040412
  Transmission Date: 20050727
  Serious: Yes (Other)
  Sender: FDA-Public Use
  Company Number: HQWYE442213APR04

PATIENT
  Age: 55 Year
  Sex: Male
  Weight: 104.42 kg

DRUGS (3)
  1. EFFEXOR XR [Suspect]
     Indication: DEPRESSION
     Dosage: 37.5 - 75  MG 1X PER 1 DAY, ORAL
     Route: 048
     Dates: start: 20040301, end: 20040401
  2. EFFEXOR XR [Suspect]
     Indication: DEPRESSION
     Dosage: 37.5 - 75  MG 1X PER 1 DAY, ORAL
     Route: 048
     Dates: start: 20040401
  3. DILANTIN [Concomitant]

REACTIONS (7)
  - ANOREXIA [None]
  - ANXIETY [None]
  - CHILLS [None]
  - CONVULSION [None]
  - FEELING ABNORMAL [None]
  - INSOMNIA [None]
  - SPEECH DISORDER [None]
